FAERS Safety Report 17970135 (Version 2)
Quarter: 2020Q3

REPORT INFORMATION
  Report Type: Spontaneous
  Country: US (occurrence: US)
  Receive Date: 20200701
  Receipt Date: 20200715
  Transmission Date: 20201103
  Serious: No
  Sender: FDA-Public Use
  Company Number: US-FRESENIUS KABI-FK202006537

PATIENT
  Age: 6 Year
  Sex: Male

DRUGS (1)
  1. SMOFLIPID [Suspect]
     Active Substance: FISH OIL\MEDIUM-CHAIN TRIGLYCERIDES\OLIVE OIL\SOYBEAN OIL
     Indication: PARENTERAL NUTRITION
     Dosage: 100 MG PER HOUR FOR 2 HOURS (LIPID INFUSION RATE (LIR) OF 0.99 G PER KG PER HR)
     Dates: start: 20191001, end: 20191001

REACTIONS (4)
  - Intentional product use issue [Recovered/Resolved]
  - Hypertriglyceridaemia [Recovered/Resolved]
  - Device programming error [Recovered/Resolved]
  - Incorrect drug administration rate [Recovered/Resolved]

NARRATIVE: CASE EVENT DATE: 20191001
